FAERS Safety Report 12480358 (Version 1)
Quarter: 2016Q2

REPORT INFORMATION
  Report Type: Spontaneous
  Country: US (occurrence: US)
  Receive Date: 20160620
  Receipt Date: 20160620
  Transmission Date: 20160815
  Serious: Yes (Hospitalization)
  Sender: FDA-Public Use
  Company Number: US-TARO PHARMACEUTICALS USA.,INC-2016SUN00306

PATIENT
  Age: 67 Year
  Sex: Female

DRUGS (11)
  1. ARFORMOTEROL [Concomitant]
     Active Substance: ARFORMOTEROL
  2. DRONEDARONE [Concomitant]
     Active Substance: DRONEDARONE
  3. DIGOXIN. [Concomitant]
     Active Substance: DIGOXIN
  4. BUPROPION. [Concomitant]
     Active Substance: BUPROPION
  5. FUROSEMIDE. [Concomitant]
     Active Substance: FUROSEMIDE
  6. LOPRESSOR [Concomitant]
     Active Substance: METOPROLOL TARTRATE
  7. PRAVASTATIN [Concomitant]
     Active Substance: PRAVASTATIN\PRAVASTATIN SODIUM
  8. IPRATROPIUM BROMIDE/SALBUTAMOL [Concomitant]
  9. WARFARIN [Suspect]
     Active Substance: WARFARIN
     Indication: ATRIAL FIBRILLATION
     Dosage: 5 MG, DAILY
     Route: 065
  10. DILTIAZEM [Concomitant]
     Active Substance: DILTIAZEM
  11. METOCLOPRAMIDE. [Concomitant]
     Active Substance: METOCLOPRAMIDE

REACTIONS (5)
  - Abasia [Recovering/Resolving]
  - Extradural haematoma [Recovering/Resolving]
  - Urinary retention [Recovering/Resolving]
  - Peroneal nerve palsy [Recovering/Resolving]
  - Muscular weakness [Recovering/Resolving]
